FAERS Safety Report 10969919 (Version 2)
Quarter: 2019Q1

REPORT INFORMATION
  Report Type: Spontaneous
  Country: US (occurrence: US)
  Receive Date: 20150331
  Receipt Date: 20190130
  Transmission Date: 20190417
  Serious: No
  Sender: FDA-Public Use
  Company Number: US-PFIZER INC-2015107484

PATIENT
  Age: 61 Year
  Sex: Female
  Weight: 82 kg

DRUGS (3)
  1. NEURONTIN [Suspect]
     Active Substance: GABAPENTIN
     Indication: FIBROMYALGIA
     Dosage: 800 MG, 3X/DAY
     Route: 048
     Dates: start: 201501
  2. NEURONTIN [Suspect]
     Active Substance: GABAPENTIN
     Indication: BACK DISORDER
  3. NEURONTIN [Suspect]
     Active Substance: GABAPENTIN
     Indication: RHEUMATOID ARTHRITIS

REACTIONS (2)
  - Drug ineffective for unapproved indication [Not Recovered/Not Resolved]
  - Bursitis [Unknown]

NARRATIVE: CASE EVENT DATE: 201501
